FAERS Safety Report 12381897 (Version 4)
Quarter: 2017Q2

REPORT INFORMATION
  Report Type: Spontaneous
  Country: US (occurrence: US)
  Receive Date: 20160518
  Receipt Date: 20170510
  Transmission Date: 20170830
  Serious: Yes (Other)
  Sender: FDA-Public Use
  Company Number: US-JNJFOC-20160514065

PATIENT
  Sex: Male
  Weight: 104.33 kg

DRUGS (7)
  1. INVEGA SUSTENNA [Suspect]
     Active Substance: PALIPERIDONE PALMITATE
     Indication: DEPRESSION
     Dosage: STARTED IN 2013 OR 2014
     Route: 030
  2. INVEGA TRINZA [Suspect]
     Active Substance: PALIPERIDONE PALMITATE
     Indication: PRODUCT USED FOR UNKNOWN INDICATION
     Route: 030
     Dates: start: 2015
  3. BENZTROPINE [Concomitant]
     Active Substance: BENZTROPINE
     Indication: ADVERSE DRUG REACTION
     Route: 065
  4. BENZTROPINE [Concomitant]
     Active Substance: BENZTROPINE
     Indication: RESTLESSNESS
     Route: 065
  5. ZOLOFT [Suspect]
     Active Substance: SERTRALINE HYDROCHLORIDE
     Indication: PRODUCT USED FOR UNKNOWN INDICATION
     Route: 065
     Dates: end: 2015
  6. WELLBUTRIN [Concomitant]
     Active Substance: BUPROPION HYDROCHLORIDE
     Indication: DEPRESSION
     Route: 065
     Dates: start: 2015
  7. INVEGA SUSTENNA [Suspect]
     Active Substance: PALIPERIDONE PALMITATE
     Indication: SCHIZOAFFECTIVE DISORDER
     Dosage: STARTED IN 2013 OR 2014
     Route: 030

REACTIONS (11)
  - Head injury [Recovered/Resolved]
  - Dizziness [Not Recovered/Not Resolved]
  - Restlessness [Recovering/Resolving]
  - Loss of consciousness [Recovered/Resolved]
  - Fall [Recovered/Resolved]
  - Libido disorder [Unknown]
  - Nervousness [Recovering/Resolving]
  - Syncope [Recovering/Resolving]
  - Blood prolactin increased [Not Recovered/Not Resolved]
  - Hypotension [Unknown]
  - Injection site pain [Not Recovered/Not Resolved]

NARRATIVE: CASE EVENT DATE: 2014
